FAERS Safety Report 4864295-2 (Version None)
Quarter: 2005Q4

REPORT INFORMATION
  Report Type: 
  Country: None (occurrence: None)
  Receive Date: 20051221
  Receipt Date: 20051221
  Transmission Date: 20060501
  Serious: Yes (Other)
  Sender: FDA-Public Use
  Company Number: None

PATIENT
  Age: 57 Year
  Sex: Female
  Weight: 65.7716 kg

DRUGS (1)
  1. LIPITOR [Suspect]
     Indication: BLOOD CHOLESTEROL INCREASED
     Dosage: 20 MG ONE A DAY MOUTH
     Route: 048
     Dates: start: 20051010, end: 20051203

REACTIONS (4)
  - ASTHENIA [None]
  - DIFFICULTY IN WALKING [None]
  - MYALGIA [None]
  - PAIN IN EXTREMITY [None]
